FAERS Safety Report 16840060 (Version 1)
Quarter: 2019Q3

REPORT INFORMATION
  Report Type: Spontaneous
  Country: US (occurrence: US)
  Receive Date: 20190731
  Receipt Date: 20190731
  Transmission Date: 20191005
  Serious: Yes (Disabling)
  Sender: FDA-Public Use
  Company Number: None

PATIENT
  Age: 67 Year
  Sex: Female
  Weight: 68.95 kg

DRUGS (17)
  1. LINZEE [Concomitant]
  2. TYMLOS [Concomitant]
     Active Substance: ABALOPARATIDE
  3. CLOBETASOL PROPRINATE [Concomitant]
  4. BONE STIMULATOR [Concomitant]
  5. RANITIDINE. [Concomitant]
     Active Substance: RANITIDINE
  6. ZYRTEC [Concomitant]
     Active Substance: CETIRIZINE HYDROCHLORIDE
  7. MAGNESIUM [Concomitant]
     Active Substance: MAGNESIUM
  8. SIMPONI ARIA [Suspect]
     Active Substance: GOLIMUMAB
     Indication: PSORIATIC ARTHROPATHY
     Dosage: ?          QUANTITY:138 ML MILLILITRE(S);OTHER FREQUENCY:FIRST DOSE;OTHER ROUTE:INFUSION?
     Route: 042
     Dates: start: 20190701, end: 20190701
  9. DIGESTIVE ADVANTAGE [Concomitant]
  10. ALLEGRA [Concomitant]
     Active Substance: FEXOFENADINE HYDROCHLORIDE
  11. SENNA [Concomitant]
     Active Substance: SENNA LEAF\SENNOSIDES\SENNOSIDES A AND B
  12. STOOL SOFTENER (DOCUSATE) [Concomitant]
     Active Substance: DOCUSATE
  13. LOW DOSE VITAMIN K2 [Concomitant]
  14. ASPIRIN. [Concomitant]
     Active Substance: ASPIRIN
  15. BIO-CAL [Concomitant]
  16. PROTONIX [Concomitant]
     Active Substance: PANTOPRAZOLE SODIUM
  17. GINKGOLD [Concomitant]

REACTIONS (1)
  - Rash [None]

NARRATIVE: CASE EVENT DATE: 20190711
